FAERS Safety Report 8759723 (Version 1)
Quarter: 2012Q4

REPORT INFORMATION
  Report Type: 
  Country: US (occurrence: US)
  Receive Date: 20120829
  Receipt Date: 20120829
  Transmission Date: 20130627
  Serious: Yes (Other)
  Sender: FDA-Public Use
  Company Number: US-ROCHE-788223

PATIENT
  Age: 15 Year
  Sex: Female
  Weight: 46.76 kg

DRUGS (3)
  1. ACCUTANE [Suspect]
     Indication: ACNE
     Route: 065
     Dates: start: 200107, end: 200202
  2. MIRCETTE [Concomitant]
     Indication: CONTRACEPTION
  3. YAZ [Concomitant]
     Indication: CONTRACEPTION

REACTIONS (6)
  - Colitis [Unknown]
  - Inflammatory bowel disease [Unknown]
  - Large intestine polyp [Unknown]
  - Emotional distress [Not Recovered/Not Resolved]
  - Irritable bowel syndrome [Unknown]
  - Arthralgia [Unknown]
